FAERS Safety Report 8318591-7 (Version None)
Quarter: 2012Q2

REPORT INFORMATION
  Report Type: 
  Country: None (occurrence: None)
  Receive Date: 20120427
  Receipt Date: 20090805
  Transmission Date: 20120825
  Serious: No
  Sender: FDA-Public Use
  Company Number: US-TEVA-2009009225

PATIENT
  Sex: Female
  Weight: 53.572 kg

DRUGS (18)
  1. NUVIGIL [Suspect]
     Indication: HYPERSOMNIA
     Dosage: 250 MILLIGRAM;
     Route: 048
     Dates: start: 20090731
  2. FISH OIL [Concomitant]
     Dates: start: 20040101
  3. TOPAMAX [Concomitant]
     Dates: start: 19910101
  4. CALCIUM [Concomitant]
     Dates: start: 20040101
  5. RECLAST [Concomitant]
  6. ASCORBIC ACID [Concomitant]
     Dates: start: 20040101
  7. CENTRUM [Concomitant]
     Dates: start: 20040101
  8. IMODIUM [Concomitant]
     Dates: start: 20050101
  9. DOXYCYCLINE [Concomitant]
     Dates: start: 20080101
  10. LOMOTIL [Concomitant]
     Dates: start: 20050101
  11. VITAMIN B-12 [Concomitant]
     Dates: start: 20090401
  12. BISMUTH SUBSALICYLATE [Concomitant]
     Dates: start: 20050101
  13. ASPIRIN [Concomitant]
     Dates: start: 20050101
  14. LEVOTHYROXINE SODIUM [Concomitant]
     Dates: start: 19890101
  15. PREVACID [Concomitant]
     Dates: start: 20070101
  16. B50 [Concomitant]
     Dates: start: 20040101
  17. VITAMIN E [Concomitant]
     Dates: start: 20040101
  18. MINOCYCLINE HCL [Concomitant]
     Dates: start: 20040101

REACTIONS (1)
  - DRUG INEFFECTIVE FOR UNAPPROVED INDICATION [None]
